FAERS Safety Report 5527698-9 (Version None)
Quarter: 2007Q4

REPORT INFORMATION
  Report Type: 
  Country: None (occurrence: None)
  Receive Date: 20071128
  Receipt Date: 20071116
  Transmission Date: 20080405
  Serious: Yes (Death, Hospitalization, Other)
  Sender: FDA-Public Use
  Company Number: DE-AMGEN-UK235083

PATIENT
  Sex: Male

DRUGS (10)
  1. KINERET [Suspect]
     Indication: RHEUMATOID ARTHRITIS
     Route: 058
     Dates: start: 20041001, end: 20060901
  2. METHOTREXATE [Suspect]
     Route: 065
     Dates: start: 20031001, end: 20060901
  3. LEFLUNOMIDE [Concomitant]
     Route: 065
     Dates: start: 20030101
  4. PREDNISOLONE [Concomitant]
  5. INSULIN [Concomitant]
  6. RAMIPRIL [Concomitant]
  7. TRAMADOL HCL [Concomitant]
  8. FOSAMAX [Concomitant]
  9. OSSOFORTIN [Concomitant]
  10. NEXIUM [Concomitant]

REACTIONS (12)
  - ANURIA [None]
  - ARTHRITIS BACTERIAL [None]
  - IMMUNOSUPPRESSION [None]
  - MULTI-ORGAN FAILURE [None]
  - PERIPHERAL VASCULAR DISORDER [None]
  - PNEUMONIA [None]
  - RENAL FAILURE ACUTE [None]
  - RESPIRATORY FAILURE [None]
  - SEPSIS [None]
  - SERRATIA INFECTION [None]
  - SHOCK [None]
  - STAPHYLOCOCCAL INFECTION [None]
